FAERS Safety Report 25333735 (Version 2)
Quarter: 2025Q2

REPORT INFORMATION
  Report Type: Report from Study
  Country: US (occurrence: US)
  Receive Date: 20250520
  Receipt Date: 20250527
  Transmission Date: 20250716
  Serious: Yes (Other)
  Sender: MALLINCKRODT
  Company Number: US-MALLINCKRODT-MNK202502606

PATIENT
  Sex: Female

DRUGS (2)
  1. CORTICOTROPIN [Suspect]
     Active Substance: CORTICOTROPIN
     Indication: Multiple sclerosis
  2. CORTICOTROPIN [Suspect]
     Active Substance: CORTICOTROPIN
     Dosage: 80 UNITS

REACTIONS (4)
  - Multiple sclerosis relapse [Recovering/Resolving]
  - Carpal tunnel syndrome [Unknown]
  - Insomnia [Not Recovered/Not Resolved]
  - Mood altered [Unknown]
